FAERS Safety Report 23939055 (Version 2)
Quarter: 2024Q3

REPORT INFORMATION
  Report Type: Report from Study
  Country: US (occurrence: US)
  Receive Date: 20240604
  Receipt Date: 20240716
  Transmission Date: 20241017
  Serious: Yes (Hospitalization, Other)
  Sender: JAZZ
  Company Number: US-JAZZ PHARMACEUTICALS-2022-US-026415

PATIENT
  Age: 9 Year
  Sex: Male

DRUGS (6)
  1. EPIDIOLEX [Suspect]
     Active Substance: CANNABIDIOL
     Indication: Epilepsy
     Dosage: 1 MILLITER IN MORNING, 0.5ML IN AFTERNOON AND 1 ML IN EVENING
     Route: 048
     Dates: start: 20220505
  2. EPIDIOLEX [Suspect]
     Active Substance: CANNABIDIOL
     Indication: Partial seizures
     Dosage: 1 MILLILITER, TID, 1 ML VIA G-TUBE EVERY MORNING, 1 ML BEFORE LUNCH, AND 1 ML IN THE EVENING
     Dates: start: 202107
  3. EPIDIOLEX [Suspect]
     Active Substance: CANNABIDIOL
     Indication: Idiopathic generalised epilepsy
     Dosage: 1.3 MILLILITER, TID, GTUBE
     Dates: start: 202107
  4. EPIDIOLEX [Suspect]
     Active Substance: CANNABIDIOL
     Dosage: 1.3 MILLILITER, VIA G-TUBE IN THE MORNING, AT NOON AND IN THE EVENING
     Dates: start: 202107
  5. CANNABIDIOL [Suspect]
     Active Substance: CANNABIDIOL
     Indication: Product used for unknown indication
     Dosage: UNK
  6. VALTOCO [Concomitant]
     Active Substance: DIAZEPAM
     Indication: Seizure
     Dosage: ADMINISTER 1 SPRAY IN ONE NOSTRIL FOR ONE DOSE (FOR SEIZURES LASTING LONGER THAN 5 MINUTES FOR UP TO

REACTIONS (6)
  - Seizure [Unknown]
  - Drug ineffective [Unknown]
  - Seizure [Unknown]
  - Seizure [Recovered/Resolved]
  - Off label use [Unknown]
  - Product administration interrupted [Unknown]

NARRATIVE: CASE EVENT DATE: 20240401
